FAERS Safety Report 9488722 (Version 4)
Quarter: 2013Q4

REPORT INFORMATION
  Report Type: Report from Study
  Country: CA (occurrence: CA)
  Receive Date: 20130829
  Receipt Date: 20131125
  Transmission Date: 20140711
  Serious: Yes (Death)
  Sender: FDA-Public Use
  Company Number: CA-ALLERGAN-1313148US

PATIENT
  Age: 40 Year
  Sex: Male

DRUGS (16)
  1. BOTULINUM TOXIN TYPE A - GENERAL (9060X) [Suspect]
     Indication: DYSTONIA
     Dosage: 60 UNITS, SINGLE
     Route: 030
     Dates: start: 20091121, end: 20091121
  2. BOTULINUM TOXIN TYPE A - GENERAL (9060X) [Suspect]
     Dosage: 60 UNITS, SINGLE
     Route: 030
     Dates: start: 20091121, end: 20091121
  3. BOTULINUM TOXIN TYPE A - GENERAL (9060X) [Suspect]
     Dosage: 30 UNITS, SINGLE
     Route: 030
     Dates: start: 20091121, end: 20091121
  4. BOTULINUM TOXIN TYPE A - GENERAL (9060X) [Suspect]
     Dosage: 20 UNITS, SINGLE
     Route: 030
     Dates: start: 20091121, end: 20091121
  5. BOTULINUM TOXIN TYPE A - GENERAL (9060X) [Suspect]
     Dosage: 30 UNITS, SINGLE
     Route: 030
     Dates: start: 20091121, end: 20091121
  6. BOTULINUM TOXIN TYPE A - GENERAL (9060X) [Suspect]
     Dosage: 50 UNITS, SINGLE
     Route: 030
     Dates: start: 20091121, end: 20091121
  7. BOTULINUM TOXIN TYPE A - GENERAL (9060X) [Suspect]
     Dosage: 30 UNITS, SINGLE
     Route: 030
     Dates: start: 20091121, end: 20091121
  8. BOTULINUM TOXIN TYPE A - GENERAL (9060X) [Suspect]
     Dosage: 20 UNITS, SINGLE
     Route: 030
     Dates: start: 20091121, end: 20091121
  9. BOTULINUM TOXIN TYPE A - GENERAL (9060X) [Suspect]
     Dosage: 60 UNITS, SINGLE
     Route: 030
     Dates: start: 20070501, end: 20070501
  10. BOTULINUM TOXIN TYPE A - GENERAL (9060X) [Suspect]
     Dosage: 60 UNITS, SINGLE
     Route: 030
     Dates: start: 20070501, end: 20070501
  11. BOTULINUM TOXIN TYPE A - GENERAL (9060X) [Suspect]
     Dosage: 30 UNITS, SINGLE
     Route: 030
     Dates: start: 20070501, end: 20070501
  12. BOTULINUM TOXIN TYPE A - GENERAL (9060X) [Suspect]
     Dosage: 20 UNITS, SINGLE
     Route: 030
     Dates: start: 20070501, end: 20070501
  13. BOTULINUM TOXIN TYPE A - GENERAL (9060X) [Suspect]
     Dosage: 30 UNITS, SINGLE
     Route: 030
     Dates: start: 20070501, end: 20070501
  14. BOTULINUM TOXIN TYPE A - GENERAL (9060X) [Suspect]
     Dosage: 50 UNITS, SINGLE
     Route: 030
     Dates: start: 20070501, end: 20070501
  15. BOTULINUM TOXIN TYPE A - GENERAL (9060X) [Suspect]
     Dosage: 30 UNITS, SINGLE
     Route: 030
     Dates: start: 20070501, end: 20070501
  16. BOTULINUM TOXIN TYPE A - GENERAL (9060X) [Suspect]
     Dosage: 20 UNITS, SINGLE
     Route: 030
     Dates: start: 20070501, end: 20070501

REACTIONS (1)
  - Death [Fatal]
